FAERS Safety Report 15427224 (Version 2)
Quarter: 2018Q4

REPORT INFORMATION
  Report Type: Spontaneous
  Country: US (occurrence: US)
  Receive Date: 20180925
  Receipt Date: 20181001
  Transmission Date: 20190204
  Serious: Yes (Other)
  Sender: FDA-Public Use
  Company Number: US-TEVA-2018-US-957389

PATIENT
  Age: 21 Year
  Sex: Male

DRUGS (6)
  1. PENICILLIN V [Concomitant]
     Active Substance: PENICILLIN V
     Route: 048
  2. CYCLOPHOSPHAMIDE. [Suspect]
     Active Substance: CYCLOPHOSPHAMIDE
     Indication: BONE MARROW CONDITIONING REGIMEN
     Dosage: ON DAYS -6 AND -5
     Route: 065
  3. MYCOPHENOLATE MOFETIL. [Suspect]
     Active Substance: MYCOPHENOLATE MOFETIL
     Indication: PROPHYLAXIS AGAINST GRAFT VERSUS HOST DISEASE
     Dosage: 3 TIMES DAILY FROM DAYS +5 TO +35
     Route: 048
  4. CYCLOPHOSPHAMIDE. [Suspect]
     Active Substance: CYCLOPHOSPHAMIDE
     Indication: PROPHYLAXIS AGAINST GRAFT VERSUS HOST DISEASE
     Dosage: ON DAYS +3 AND +4
     Route: 042
  5. SIROLIMUS. [Suspect]
     Active Substance: SIROLIMUS
     Indication: PROPHYLAXIS AGAINST GRAFT VERSUS HOST DISEASE
     Dosage: FROM DAY +5 DOSED FOR A TARGET TROUGH OF 5 TO 15 NG/ML.
     Route: 065
  6. FLUDARABINE PHOSPHATE. [Suspect]
     Active Substance: FLUDARABINE PHOSPHATE
     Indication: BONE MARROW CONDITIONING REGIMEN
     Dosage: ON DAYS -6 AND -2
     Route: 065

REACTIONS (9)
  - Acute graft versus host disease in skin [Unknown]
  - Oral herpes [Unknown]
  - Influenza [Unknown]
  - Cytomegalovirus infection [Unknown]
  - Graft versus host disease in eye [Recovering/Resolving]
  - Herpes simplex [Unknown]
  - Acute graft versus host disease in liver [Recovering/Resolving]
  - Chronic graft versus host disease in liver [Recovering/Resolving]
  - Corona virus infection [Unknown]
